FAERS Safety Report 7422623-8 (Version None)
Quarter: 2011Q2

REPORT INFORMATION
  Report Type: 
  Country: None (occurrence: None)
  Receive Date: 20110411
  Receipt Date: 20110401
  Transmission Date: 20111010
  Serious: Yes (Hospitalization)
  Sender: FDA-Public Use
  Company Number: FK201100633

PATIENT
  Age: 15 Year
  Sex: Male

DRUGS (3)
  1. FLUOROURACIL [Suspect]
     Indication: COLORECTAL CANCER METASTATIC
     Dosage: 171.4286 MG/M2 (2400 MG/M2, 1 IN 14 D)
     Route: 042
     Dates: start: 20101109
  2. OXALIPLATIN [Suspect]
     Indication: COLORECTAL CANCER METASTATIC
     Dosage: 1 IN 14 D
     Route: 042
     Dates: start: 20101109
  3. AVASTIN [Suspect]
     Indication: COLORECTAL CANCER METASTATIC
     Dosage: 0.3571 MG/KG (5 MG/KG, 1 IN 14 D)
     Route: 042
     Dates: start: 20101109, end: 20101121

REACTIONS (1)
  - PULMONARY EMBOLISM [None]
